FAERS Safety Report 16676283 (Version 3)
Quarter: 2020Q3

REPORT INFORMATION
  Report Type: Spontaneous
  Country: US (occurrence: US)
  Receive Date: 20190807
  Receipt Date: 20200813
  Transmission Date: 20201102
  Serious: Yes (Other)
  Sender: FDA-Public Use
  Company Number: US-GILEAD-2019-0421717

PATIENT
  Age: 60 Year
  Sex: Female

DRUGS (43)
  1. ATRIPLA [Suspect]
     Active Substance: EFAVIRENZ\EMTRICITABINE\TENOFOVIR DISOPROXIL FUMARATE
     Indication: HIV INFECTION
     Dosage: UNK
     Route: 048
     Dates: start: 200701, end: 201406
  2. FLUCONAZOLE. [Concomitant]
     Active Substance: FLUCONAZOLE
  3. LORAZEPAM. [Concomitant]
     Active Substance: LORAZEPAM
  4. ONDANSETRON [Concomitant]
     Active Substance: ONDANSETRON
  5. DIAZEPAM. [Concomitant]
     Active Substance: DIAZEPAM
  6. ACETAMINOPHEN AND CODEINE [Concomitant]
     Active Substance: ACETAMINOPHEN\CODEINE PHOSPHATE
  7. METOCLOPRAMIDE. [Concomitant]
     Active Substance: METOCLOPRAMIDE
  8. LACTATED RINGERS SOLUTION [Concomitant]
     Active Substance: CALCIUM CHLORIDE\POTASSIUM CHLORIDE\SODIUM CHLORIDE\SODIUM LACTATE
  9. BACITRACIN. [Concomitant]
     Active Substance: BACITRACIN
  10. LABETALOL [Concomitant]
     Active Substance: LABETALOL\LABETALOL HYDROCHLORIDE
  11. PHENTERMINE HCL [Concomitant]
     Active Substance: PHENTERMINE HYDROCHLORIDE
  12. BENZPHETAMINE HCL [Concomitant]
     Active Substance: BENZPHETAMINE HYDROCHLORIDE
  13. LATISSE [Concomitant]
     Active Substance: BIMATOPROST
  14. VITAMIN C PLUS [ASCORBIC ACID] [Concomitant]
  15. ASPIRIN EC [Concomitant]
     Active Substance: ASPIRIN
  16. ACETAMINOPHEN. [Concomitant]
     Active Substance: ACETAMINOPHEN
  17. AZITHROMYCIN ANHYDROUS. [Concomitant]
     Active Substance: AZITHROMYCIN ANHYDROUS
  18. LEVOTHYROXINE SODIUM. [Concomitant]
     Active Substance: LEVOTHYROXINE SODIUM
  19. MIDAZOLAM. [Concomitant]
     Active Substance: MIDAZOLAM
  20. KETOROLAC [Concomitant]
     Active Substance: KETOROLAC TROMETHAMINE
  21. SEVOFLURANE. [Concomitant]
     Active Substance: SEVOFLURANE
  22. PROMETHAZINE [Concomitant]
     Active Substance: PROMETHAZINE HYDROCHLORIDE
  23. OFIRMEV [Concomitant]
     Active Substance: ACETAMINOPHEN
  24. NORCO [Concomitant]
     Active Substance: ACETAMINOPHEN\HYDROCODONE BITARTRATE
  25. ODEFSEY [Concomitant]
     Active Substance: EMTRICITABINE\RILPIVIRINE HYDROCHLORIDE\TENOFOVIR ALAFENAMIDE FUMARATE
  26. PHENDIMETRAZINE. [Concomitant]
     Active Substance: PHENDIMETRAZINE TARTRATE
  27. ARMOUR THYROID [Concomitant]
     Active Substance: THYROID, PORCINE
  28. TRAMADOL HCL [Concomitant]
     Active Substance: TRAMADOL HYDROCHLORIDE
  29. GABAPENTIN. [Concomitant]
     Active Substance: GABAPENTIN
  30. FENTANYL CITRATE. [Concomitant]
     Active Substance: FENTANYL CITRATE
  31. BUPIVACAINE. [Concomitant]
     Active Substance: BUPIVACAINE
  32. HYDROCODONE/ACETAMINOPHEN [Concomitant]
     Active Substance: ACETAMINOPHEN\HYDROCODONE
  33. BIMATOPROST. [Concomitant]
     Active Substance: BIMATOPROST
  34. PRAVASTATIN. [Concomitant]
     Active Substance: PRAVASTATIN
  35. VITAMIN D3 [Concomitant]
     Active Substance: CHOLECALCIFEROL
  36. DEXAMETHASONE. [Concomitant]
     Active Substance: DEXAMETHASONE
  37. MEPERIDINE HCL [Concomitant]
     Active Substance: MEPERIDINE HYDROCHLORIDE
  38. NAPROXEN. [Concomitant]
     Active Substance: NAPROXEN
  39. COMPLERA [Suspect]
     Active Substance: EMTRICITABINE\RILPIVIRINE HYDROCHLORIDE\TENOFOVIR DISOPROXIL FUMARATE
     Indication: HIV INFECTION
     Dosage: 1 DOSAGE FORM, QD
     Route: 048
     Dates: start: 201407, end: 201906
  40. DICLOFENAC [Concomitant]
     Active Substance: DICLOFENAC
  41. CLINDAMYCIN. [Concomitant]
     Active Substance: CLINDAMYCIN
  42. HYDRALAZINE [Concomitant]
     Active Substance: HYDRALAZINE HYDROCHLORIDE
  43. HYDROMORPHONE [Concomitant]
     Active Substance: HYDROMORPHONE

REACTIONS (9)
  - Bone loss [Not Recovered/Not Resolved]
  - Anhedonia [Unknown]
  - Anxiety [Unknown]
  - Emotional distress [Unknown]
  - Osteonecrosis [Unknown]
  - Bone density decreased [Not Recovered/Not Resolved]
  - Ankle fracture [Not Recovered/Not Resolved]
  - Economic problem [Unknown]
  - Pain [Unknown]

NARRATIVE: CASE EVENT DATE: 201811
